FAERS Safety Report 5206618-0 (Version None)
Quarter: 2006Q4

REPORT INFORMATION
  Report Type: 
  Country: None (occurrence: None)
  Receive Date: 20061026
  Receipt Date: 20060721
  Transmission Date: 20070319
  Serious: No
  Sender: FDA-Public Use
  Company Number: 2006091917

PATIENT
  Age: 64 Year
  Sex: Female
  Weight: 58.9676 kg

DRUGS (6)
  1. LYRICA [Suspect]
     Indication: CYSTITIS INTERSTITIAL
     Dosage: 300 MG (100 MG, 3 IN 1 D)
     Dates: start: 20060720
  2. ELMIRON [Concomitant]
  3. FOSAMAX [Concomitant]
  4. HYDOCHLOROTHIAZIDE (HYDROCHLOROTHIAZIDE) [Concomitant]
  5. LEVOXYL [Concomitant]
  6. VITAMIN D [Concomitant]

REACTIONS (2)
  - ABASIA [None]
  - DIZZINESS [None]
